FAERS Safety Report 23401760 (Version 1)
Quarter: 2024Q1

REPORT INFORMATION
  Report Type: Spontaneous
  Country: TR (occurrence: TR)
  Receive Date: 20240115
  Receipt Date: 20240115
  Transmission Date: 20240410
  Serious: Yes (Other)
  Sender: FDA-Public Use
  Company Number: TR-002147023-NVSC2024TR007512

PATIENT
  Age: 40 Year
  Sex: Female

DRUGS (1)
  1. TRILEPTAL [Suspect]
     Active Substance: OXCARBAZEPINE
     Indication: Epilepsy
     Dosage: UNK (SINCE THE AGE OF 12)
     Route: 065

REACTIONS (3)
  - Drug dependence [Unknown]
  - Seizure [Unknown]
  - Illness [Unknown]
